FAERS Safety Report 10191258 (Version 1)
Quarter: 2014Q2

REPORT INFORMATION
  Report Type: Spontaneous
  Country: US (occurrence: US)
  Receive Date: 20140523
  Receipt Date: 20140523
  Transmission Date: 20141212
  Serious: Yes (Other)
  Sender: FDA-Public Use
  Company Number: CHPA2014US006883

PATIENT
  Age: 58 Year
  Sex: Female

DRUGS (8)
  1. MAALOX ANTACID/ANTIGAS MAX LIQ UNKNOWN [Suspect]
     Indication: DYSPEPSIA
     Dosage: UNK
     Route: 048
     Dates: start: 1986
  2. MAALOX ANTACID/ANTIGAS MAX LIQ UNKNOWN [Suspect]
     Indication: ABDOMINAL DISCOMFORT
  3. MAALOX ANTACID/ANTIGAS MAX LIQ UNKNOWN [Suspect]
     Indication: OFF LABEL USE
  4. MAALOX PLUS [Suspect]
     Indication: DYSPEPSIA
     Route: 065
  5. MAALOX PLUS [Suspect]
     Indication: ABDOMINAL DISCOMFORT
  6. MAALOX PLUS [Suspect]
     Indication: OFF LABEL USE
  7. GAS-X [Concomitant]
  8. TUMS [Concomitant]

REACTIONS (5)
  - Gallbladder disorder [Recovered/Resolved]
  - Dyspepsia [Recovering/Resolving]
  - Dyspepsia [Unknown]
  - Therapeutic response changed [Unknown]
  - Expired product administered [Unknown]
